FAERS Safety Report 11787420 (Version 1)
Quarter: 2015Q4

REPORT INFORMATION
  Report Type: Report from Study
  Country: MX (occurrence: MX)
  Receive Date: 20151130
  Receipt Date: 20151130
  Transmission Date: 20160305
  Serious: Yes (Death)
  Sender: FDA-Public Use
  Company Number: PHHY2015MX154649

PATIENT
  Sex: Female

DRUGS (1)
  1. AFINITOR [Suspect]
     Active Substance: EVEROLIMUS
     Indication: BREAST CANCER METASTATIC
     Dosage: 5 ML/5 MG, EVERY SATURDAY, VIA LUMBAR PUNCTURE
     Route: 065
     Dates: start: 20150404, end: 20150523

REACTIONS (6)
  - Decreased immune responsiveness [Unknown]
  - Respiratory disorder [Unknown]
  - General physical health deterioration [Unknown]
  - Respiratory arrest [Fatal]
  - Cough [Unknown]
  - Off label use [Unknown]
